FAERS Safety Report 10205879 (Version 3)
Quarter: 2014Q3

REPORT INFORMATION
  Report Type: Report from Study
  Country: US (occurrence: US)
  Receive Date: 20140530
  Receipt Date: 20140714
  Transmission Date: 20150326
  Serious: Yes (Death, Hospitalization)
  Sender: FDA-Public Use
  Company Number: US-BIOGENIDEC-2014BI048736

PATIENT
  Age: 61 Year
  Sex: Female

DRUGS (12)
  1. BENICAR [Concomitant]
     Active Substance: OLMESARTAN MEDOXOMIL
  2. ZAROXOLYN [Concomitant]
     Active Substance: METOLAZONE
  3. TOPROL XL [Concomitant]
     Active Substance: METOPROLOL SUCCINATE
  4. TECFIDERA [Suspect]
     Active Substance: DIMETHYL FUMARATE
     Indication: MULTIPLE SCLEROSIS
     Route: 048
     Dates: start: 20130531, end: 20130607
  5. PROTONIX [Concomitant]
     Active Substance: PANTOPRAZOLE SODIUM
  6. TECFIDERA [Suspect]
     Active Substance: DIMETHYL FUMARATE
     Indication: MULTIPLE SCLEROSIS
     Route: 048
     Dates: start: 20130608, end: 20131109
  7. ZOCOR [Concomitant]
     Active Substance: SIMVASTATIN
  8. PHENERGAN [Concomitant]
     Active Substance: PROMETHAZINE HYDROCHLORIDE
  9. ASPIRIN. [Concomitant]
     Active Substance: ASPIRIN
  10. DEMADEX [Concomitant]
     Active Substance: TORSEMIDE
  11. CARAFATE [Concomitant]
     Active Substance: SUCRALFATE
  12. VITAMIN B12 [Concomitant]
     Active Substance: CYANOCOBALAMIN

REACTIONS (8)
  - Dyspnoea [Unknown]
  - Amyloidosis [Fatal]
  - Renal failure chronic [Unknown]
  - Pleural effusion [Unknown]
  - Fatigue [Unknown]
  - Hypotension [Unknown]
  - Respiratory muscle weakness [Unknown]
  - Death [Fatal]

NARRATIVE: CASE EVENT DATE: 20131018
